FAERS Safety Report 13851090 (Version 12)
Quarter: 2019Q3

REPORT INFORMATION
  Report Type: Spontaneous
  Country: JP (occurrence: JP)
  Receive Date: 20170810
  Receipt Date: 20190911
  Transmission Date: 20191004
  Serious: Yes (Death, Life-Threatening, Hospitalization, Other)
  Sender: FDA-Public Use
  Company Number: JP-009507513-1708JPN001117J

PATIENT
  Age: 61 Year
  Sex: Male
  Weight: 47 kg

DRUGS (5)
  1. SEEBRI [Concomitant]
     Active Substance: GLYCOPYRROLATE
     Dosage: 1 DF, QD
     Route: 055
  2. KEYTRUDA [Suspect]
     Active Substance: PEMBROLIZUMAB
     Indication: NON-SMALL CELL LUNG CANCER
     Dosage: 200 MG, Q3W
     Route: 041
     Dates: start: 20170622, end: 20170713
  3. ACETAMINOPHEN. [Concomitant]
     Active Substance: ACETAMINOPHEN
     Dosage: UNK, PRN
     Route: 048
  4. MEDICON [Concomitant]
     Active Substance: DEXTROMETHORPHAN HYDROBROMIDE
     Dosage: UNK, PRN
     Route: 048
  5. LOXOPROFEN [Concomitant]
     Active Substance: LOXOPROFEN
     Dosage: UNK, PRN
     Route: 048

REACTIONS (7)
  - Pyrexia [Unknown]
  - Malaise [Unknown]
  - Encephalitis [Recovering/Resolving]
  - Febrile neutropenia [Fatal]
  - Decreased appetite [Unknown]
  - Altered state of consciousness [Recovering/Resolving]
  - Meningitis [Unknown]

NARRATIVE: CASE EVENT DATE: 20170729
